FAERS Safety Report 18149892 (Version 1)
Quarter: 2020Q3

REPORT INFORMATION
  Report Type: Spontaneous
  Country: US (occurrence: US)
  Receive Date: 20200813
  Receipt Date: 20200813
  Transmission Date: 20201103
  Serious: Yes (Death)
  Sender: FDA-Public Use
  Company Number: None

PATIENT
  Age: 66 Year
  Sex: Female
  Weight: 55 kg

DRUGS (3)
  1. FIUOXETINE [Concomitant]
     Dates: start: 20200201
  2. QUETIAPINE TABLET [Suspect]
     Active Substance: QUETIAPINE
     Indication: AGITATION
     Route: 048
     Dates: start: 20200531, end: 20200622
  3. ABILIFY [Concomitant]
     Active Substance: ARIPIPRAZOLE
     Dates: start: 20200201

REACTIONS (11)
  - Dementia [None]
  - Acute hepatic failure [None]
  - Rhabdomyolysis [None]
  - Respiratory failure [None]
  - Acute kidney injury [None]
  - Post-traumatic stress disorder [None]
  - Developmental delay [None]
  - Neuroleptic malignant syndrome [None]
  - Catatonia [None]
  - Behaviour disorder [None]
  - Lactic acidosis [None]

NARRATIVE: CASE EVENT DATE: 20200623
